FAERS Safety Report 5799591-8 (Version None)
Quarter: 2008Q3

REPORT INFORMATION
  Report Type: 
  Country: None (occurrence: None)
  Receive Date: 20080703
  Receipt Date: 20080623
  Transmission Date: 20090109
  Serious: Yes (Other)
  Sender: FDA-Public Use
  Company Number: PHHY2008GB12157

PATIENT
  Age: 51 Year
  Sex: Male

DRUGS (4)
  1. BACLOFEN [Suspect]
     Indication: MUSCLE RELAXANT THERAPY
     Dosage: UNK
     Dates: start: 20080512, end: 20080604
  2. ANTURAN [Concomitant]
     Indication: GOUT
     Dosage: 5 MG, TID
     Route: 048
     Dates: start: 20070430
  3. DIAZEPAM [Concomitant]
     Indication: MUSCLE RELAXANT THERAPY
     Dosage: 5 MG, BID
     Route: 048
     Dates: start: 20080222
  4. GABAPENTIN [Concomitant]
     Indication: NEURALGIA
     Dosage: 300 MG, TID
     Dates: start: 20041201

REACTIONS (3)
  - CONTUSION [None]
  - RASH [None]
  - SOMNOLENCE [None]
